FAERS Safety Report 25237048 (Version 2)
Quarter: 2025Q2

REPORT INFORMATION
  Report Type: Report from Study
  Country: CA (occurrence: CA)
  Receive Date: 20250424
  Receipt Date: 20250502
  Transmission Date: 20250717
  Serious: Yes (Other)
  Sender: ABBVIE
  Company Number: CA-ABBVIE-6238023

PATIENT
  Sex: Female

DRUGS (1)
  1. HUMIRA [Suspect]
     Active Substance: ADALIMUMAB
     Indication: Colitis ulcerative
     Dosage: LAST HUMIRA INJECTION DATE: 15 APR 2025 (40 MG WEEKLY PEN)?DOSE FORM: SOLUTION FOR INJECTION IN P...
     Route: 058

REACTIONS (2)
  - Blood disorder [Unknown]
  - Visual impairment [Unknown]
